FAERS Safety Report 5766162-9 (Version None)
Quarter: 2008Q2

REPORT INFORMATION
  Report Type: 
  Country: None (occurrence: None)
  Receive Date: 20080605
  Receipt Date: 20080528
  Transmission Date: 20081010
  Serious: Yes (Hospitalization)
  Sender: FDA-Public Use
  Company Number: 2008SP010249

PATIENT
  Age: 76 Year
  Sex: Female
  Weight: 79 kg

DRUGS (2)
  1. PEG-INTRON (PEGINTERFERON ALFA-2B) (PEGINTEFERON ALFA-2B) [Suspect]
     Indication: METASTATIC MALIGNANT MELANOMA
     Dosage: 240 MCG; SC
     Route: 058
     Dates: start: 20080507, end: 20080519
  2. SORAFENIB (SORAFENIB) [Suspect]
     Indication: METASTATIC MALIGNANT MELANOMA
     Dosage: 800 MG;PO
     Route: 048
     Dates: start: 20080507, end: 20080520

REACTIONS (2)
  - ASTHENIA [None]
  - GENERAL PHYSICAL HEALTH DETERIORATION [None]
